FAERS Safety Report 19449038 (Version 1)
Quarter: 2021Q2

REPORT INFORMATION
  Report Type: Spontaneous
  Country: MA (occurrence: MA)
  Receive Date: 20210622
  Receipt Date: 20210622
  Transmission Date: 20210717
  Serious: Yes (Other)
  Sender: FDA-Public Use
  Company Number: MA-GLAXOSMITHKLINE-MA2021GSK135149

PATIENT
  Age: 5 Year
  Sex: Female

DRUGS (2)
  1. LAMOTRIGINE. [Suspect]
     Active Substance: LAMOTRIGINE
     Indication: SEIZURE
     Dosage: UNK
  2. VALPROIC ACID. [Suspect]
     Active Substance: VALPROIC ACID
     Indication: EPILEPSY
     Dosage: UNK

REACTIONS (8)
  - Blister [Recovered/Resolved]
  - Stevens-Johnson syndrome [Recovered/Resolved]
  - Rash [Recovered/Resolved]
  - Necrosis [Recovered/Resolved]
  - Papule [Recovered/Resolved]
  - Skin exfoliation [Recovered/Resolved]
  - Mouth ulceration [Recovered/Resolved]
  - Dermatitis allergic [Recovered/Resolved]
